FAERS Safety Report 6030982-6 (Version None)
Quarter: 2009Q1

REPORT INFORMATION
  Report Type: 
  Country: None (occurrence: None)
  Receive Date: 20090106
  Receipt Date: 20090106
  Transmission Date: 20090719
  Serious: Yes (Other)
  Sender: FDA-Public Use
  Company Number: None

PATIENT
  Age: 27 Year
  Sex: Male

DRUGS (10)
  1. INVEGA [Suspect]
     Indication: SCHIZOAFFECTIVE DISORDER
     Dosage: 9 MG EVERY NIGHT PO
     Route: 048
     Dates: end: 20080811
  2. WELLBUTRIN XL [Concomitant]
  3. REMERON [Concomitant]
  4. LITHIUM [Concomitant]
  5. ABILIFY [Concomitant]
  6. MULTI-VITAMIN [Concomitant]
  7. FISH OIL [Concomitant]
  8. ATIVAN [Concomitant]
  9. COLACE [Concomitant]
  10. KLONOPIN [Concomitant]

REACTIONS (1)
  - AKATHISIA [None]
